FAERS Safety Report 26168885 (Version 1)
Quarter: 2025Q4

REPORT INFORMATION
  Report Type: Spontaneous
  Country: US (occurrence: US)
  Receive Date: 20251217
  Receipt Date: 20251217
  Transmission Date: 20260117
  Serious: No
  Sender: PACIRA
  Company Number: US-ORG100016242-2025000346

PATIENT
  Sex: Female

DRUGS (1)
  1. EXPAREL [Suspect]
     Active Substance: BUPIVACAINE
     Indication: Shoulder operation
     Dosage: NOT PROVIDED
     Route: 050
     Dates: start: 20250828, end: 20250828

REACTIONS (3)
  - Hypoaesthesia [Unknown]
  - Paraesthesia [Unknown]
  - Panic attack [Unknown]
